FAERS Safety Report 5937774-4 (Version None)
Quarter: 2008Q4

REPORT INFORMATION
  Report Type: 
  Country: None (occurrence: None)
  Receive Date: 20081031
  Receipt Date: 20081021
  Transmission Date: 20090506
  Serious: Yes (Other)
  Sender: FDA-Public Use
  Company Number: US-JNJCH-2008052991

PATIENT
  Age: 65 Year
  Sex: Female
  Weight: 77.1 kg

DRUGS (8)
  1. ROGAINE [Suspect]
     Indication: ALOPECIA
     Dosage: TEXT:UNSPECIFIED TWICE A DAY
     Route: 061
     Dates: start: 20081009, end: 20081019
  2. PREVACID [Concomitant]
     Indication: GASTROOESOPHAGEAL REFLUX DISEASE
     Dosage: TEXT:30MG UNSPECIFIED
     Route: 065
  3. ATENOLOL [Concomitant]
     Indication: HYPERTENSION
     Dosage: TEXT:25MG UNSPECIFIED
     Route: 065
  4. XANAX [Concomitant]
     Indication: ANXIETY
     Dosage: TEXT:0.25 UNSPECIFIED
     Route: 065
  5. ALLEGRA [Concomitant]
     Indication: HYPERSENSITIVITY
     Dosage: TEXT:80MG UNSPECIFIED
     Route: 065
  6. ZOCOR [Concomitant]
     Indication: BLOOD CHOLESTEROL INCREASED
     Dosage: TEXT:40MG UNSPECIFIED
     Route: 065
  7. CALTRATE [Concomitant]
     Indication: MINERAL SUPPLEMENTATION
     Dosage: TEXT:600MG UNSPECIFIED
     Route: 065
  8. CENTRUM SILVER [Concomitant]
     Indication: VITAMIN SUPPLEMENTATION
     Dosage: TEXT:UNSPECIFIED
     Route: 065

REACTIONS (5)
  - BLOOD GLUCOSE INCREASED [None]
  - BLOOD PRESSURE INCREASED [None]
  - FLUSHING [None]
  - PALPITATIONS [None]
  - PULSE ABNORMAL [None]
